FAERS Safety Report 10381702 (Version 1)
Quarter: 2014Q1

REPORT INFORMATION
  Report Type: Spontaneous
  Country: US (occurrence: None)
  Receive Date: 20140306
  Receipt Date: 20140306
  Transmission Date: 20141002
  Serious: Yes (Hospitalization)
  Sender: FDA-Public Use
  Company Number: 163-21880-13090280

PATIENT
  Age: 60 Year
  Sex: Male

DRUGS (7)
  1. REVLIMID [Suspect]
     Indication: PLASMA CELL MYELOMA
     Dosage: 28 IN 28D
     Route: 048
     Dates: start: 201110
  2. DILAUDID (HYDROMORPHONE HYDROCHLORIDE) [Concomitant]
  3. IRON (IRON) [Concomitant]
  4. LASIX (FUROSEMIDE) [Concomitant]
  5. METFORMIN (HCL (METFORMIN HYDROCHLORIDE) [Concomitant]
  6. NEURONTIN (GAAPENTIN) [Concomitant]
  7. OMEPRAZOLE (OMEPRAZOLE) [Concomitant]

REACTIONS (1)
  - Myocardial infarction [None]
